FAERS Safety Report 19273951 (Version 3)
Quarter: 2021Q3

REPORT INFORMATION
  Report Type: Report from Study
  Country: US (occurrence: US)
  Receive Date: 20210519
  Receipt Date: 20210722
  Transmission Date: 20211014
  Serious: Yes (Other)
  Sender: FDA-Public Use
  Company Number: US-BIOGEN-2021BI01012363

PATIENT
  Sex: Male
  Weight: 97.61 kg

DRUGS (7)
  1. PLEGRIDY [Suspect]
     Active Substance: PEGINTERFERON BETA-1A
     Indication: MULTIPLE SCLEROSIS
     Route: 058
     Dates: start: 2018, end: 202010
  2. BACLOFEN. [Concomitant]
     Active Substance: BACLOFEN
     Indication: MUSCLE SPASTICITY
     Dosage: 1 TABLET WITH FOOD OR MILK ORALLY THREE TIMES A DAY
     Route: 048
  3. BUSPIRONE HCL [Concomitant]
     Active Substance: BUSPIRONE HYDROCHLORIDE
     Indication: PRODUCT USED FOR UNKNOWN INDICATION
     Dosage: 1 TABLET ORALLY TWICE A DAY
     Route: 048
  4. WELLBUTRIN XL [Concomitant]
     Active Substance: BUPROPION HYDROCHLORIDE
     Indication: DEPRESSION
     Dosage: 1 TABLET IN THE MORNING ORALLY ONCE A DAY
     Route: 048
  5. PLEGRIDY [Suspect]
     Active Substance: PEGINTERFERON BETA-1A
     Dosage: 63 MCG SQ ON DAY 1, 94 MCG ON DAY 15 THEN 125 MCG/0.5 ML SQ EVERY 14 DAYS
     Route: 058
     Dates: start: 20210528
  6. PLEGRIDY [Suspect]
     Active Substance: PEGINTERFERON BETA-1A
     Indication: MULTIPLE SCLEROSIS
     Route: 058
     Dates: start: 201902, end: 202010
  7. CHOLECALCIFEROL [Concomitant]
     Active Substance: CHOLECALCIFEROL
     Indication: PRODUCT USED FOR UNKNOWN INDICATION
     Dosage: 1 CAPSULE ORALLY ONCE A DAY
     Route: 048

REACTIONS (2)
  - Quadriplegia [Unknown]
  - Influenza like illness [Recovered/Resolved]
